FAERS Safety Report 15948880 (Version 1)
Quarter: 2019Q1

REPORT INFORMATION
  Report Type: Spontaneous
  Country: JP (occurrence: JP)
  Receive Date: 20190212
  Receipt Date: 20190212
  Transmission Date: 20190417
  Serious: Yes (Life-Threatening, Other)
  Sender: FDA-Public Use
  Company Number: JP-AXELLIA-002226

PATIENT
  Age: 70 Year
  Sex: Female
  Weight: 49.1 kg

DRUGS (1)
  1. VANCOMYCIN [Suspect]
     Active Substance: VANCOMYCIN
     Indication: MENINGITIS BACTERIAL
     Dosage: 2 TO 4 TIMES PER DAY
     Route: 042

REACTIONS (1)
  - Drug ineffective [Unknown]
